FAERS Safety Report 7919634-2 (Version None)
Quarter: 2011Q4

REPORT INFORMATION
  Report Type: 
  Country: None (occurrence: None)
  Receive Date: 20111117
  Receipt Date: 20110804
  Transmission Date: 20120403
  Serious: Yes (Other)
  Sender: FDA-Public Use
  Company Number: PL-BAYER-2011-110114

PATIENT
  Sex: Female

DRUGS (1)
  1. YASMIN [Suspect]

REACTIONS (5)
  - GENERALISED OEDEMA [None]
  - FLUID RETENTION [None]
  - PAIN OF SKIN [None]
  - BREAST SWELLING [None]
  - BREAST PAIN [None]
